FAERS Safety Report 22589151 (Version 1)
Quarter: 2023Q2

REPORT INFORMATION
  Report Type: Spontaneous
  Country: AU (occurrence: AU)
  Receive Date: 20230612
  Receipt Date: 20230612
  Transmission Date: 20230722
  Serious: Yes (Death)
  Sender: FDA-Public Use
  Company Number: AU-BAYER-2023A077058

PATIENT
  Age: 78 Year

DRUGS (1)
  1. STIVARGA [Suspect]
     Active Substance: REGORAFENIB
     Dosage: UNK
     Dates: start: 20230530, end: 20230530

REACTIONS (1)
  - Death [Fatal]

NARRATIVE: CASE EVENT DATE: 20230530
